FAERS Safety Report 20963862 (Version 2)
Quarter: 2022Q3

REPORT INFORMATION
  Report Type: Spontaneous
  Country: PT (occurrence: PT)
  Receive Date: 20220615
  Receipt Date: 20220707
  Transmission Date: 20221027
  Serious: Yes (Life-Threatening, Hospitalization, Other)
  Sender: FDA-Public Use
  Company Number: PT-BAXTER-2022BAX010843

PATIENT
  Age: 21 Year
  Sex: Female

DRUGS (11)
  1. ONDANSETRON [Suspect]
     Active Substance: ONDANSETRON
     Indication: Haematemesis
     Dosage: UNK
     Route: 065
  2. METAMIZOLE MAGNESIUM [Interacting]
     Active Substance: METAMIZOLE MAGNESIUM
     Indication: Abdominal pain upper
     Dosage: EXCEEDED THE RECOMMENDED DOSE
     Route: 048
  3. METAMIZOLE MAGNESIUM [Interacting]
     Active Substance: METAMIZOLE MAGNESIUM
     Indication: Vomiting
  4. METAMIZOLE MAGNESIUM [Interacting]
     Active Substance: METAMIZOLE MAGNESIUM
     Indication: Pyrexia
  5. DESLORATADINE [Suspect]
     Active Substance: DESLORATADINE
     Indication: Abdominal pain upper
     Dosage: EXCEEDED THE RECOMMENDED DOSE
     Route: 048
  6. DESLORATADINE [Suspect]
     Active Substance: DESLORATADINE
     Indication: Vomiting
  7. DESLORATADINE [Suspect]
     Active Substance: DESLORATADINE
     Indication: Pyrexia
  8. IBUPROFEN [Suspect]
     Active Substance: IBUPROFEN
     Indication: Abdominal pain upper
     Dosage: HIGH DOSE
     Route: 048
  9. IBUPROFEN [Suspect]
     Active Substance: IBUPROFEN
     Indication: Pyrexia
  10. IBUPROFEN [Suspect]
     Active Substance: IBUPROFEN
     Indication: Vomiting
  11. PANTOPRAZOLE [Suspect]
     Active Substance: PANTOPRAZOLE
     Indication: Haematemesis
     Dosage: UNK
     Route: 065

REACTIONS (7)
  - Gastrointestinal haemorrhage [Recovered/Resolved]
  - Gastric disorder [Recovering/Resolving]
  - Intentional product misuse [Recovered/Resolved]
  - Shock haemorrhagic [Recovered/Resolved]
  - Haemorrhagic erosive gastritis [Recovered/Resolved]
  - Overdose [Unknown]
  - Off label use [Unknown]
